FAERS Safety Report 9185734 (Version 2)
Quarter: 2013Q2

REPORT INFORMATION
  Report Type: Spontaneous
  Country: US (occurrence: US)
  Receive Date: 20130325
  Receipt Date: 20130513
  Transmission Date: 20140414
  Serious: Yes (Other)
  Sender: FDA-Public Use
  Company Number: US-AMGEN-USASP2013018985

PATIENT
  Age: 60 Year
  Sex: Female
  Weight: 52.25 kg

DRUGS (10)
  1. NEUPOGEN [Suspect]
     Indication: NEUTROPENIA
     Dosage: 300 MUG, WEEKLY
     Route: 058
     Dates: start: 20130214, end: 20130301
  2. NEULASTA [Suspect]
     Indication: NEUTROPENIA
     Dosage: UNK
  3. ABRAXANE /01116001/ [Suspect]
     Indication: PANCREATIC CARCINOMA METASTATIC
     Dosage: 278 MG, WEEKLY
     Route: 042
     Dates: start: 20130102, end: 20130305
  4. ABRAXANE /01116001/ [Suspect]
     Indication: METASTASES TO LIVER
  5. COUMADIN                           /00627701/ [Concomitant]
     Indication: VENA CAVA THROMBOSIS
     Dosage: UNK
  6. TPN                                /07403901/ [Concomitant]
     Dosage: UNK
  7. TYLENOL                            /00020001/ [Concomitant]
     Dosage: UNK
  8. ZOFRAN                             /00955301/ [Concomitant]
     Dosage: UNK
  9. PRILOSEC                           /00661201/ [Concomitant]
     Dosage: UNK
  10. MOUTH WASH [Concomitant]
     Dosage: UNK

REACTIONS (8)
  - Rash pruritic [Recovered/Resolved]
  - Conjunctivitis [Unknown]
  - Feeling cold [Unknown]
  - Nail disorder [Unknown]
  - Neuropathy peripheral [Recovering/Resolving]
  - Dehydration [Unknown]
  - Fatigue [Unknown]
  - Diarrhoea [Unknown]
